FAERS Safety Report 14319695 (Version 1)
Quarter: 2017Q4

REPORT INFORMATION
  Report Type: Spontaneous
  Country: US (occurrence: US)
  Receive Date: 20171222
  Receipt Date: 20171222
  Transmission Date: 20180321
  Serious: Yes (Disabling)
  Sender: FDA-Public Use
  Company Number: US-OTSUKA-2017_027384

PATIENT
  Age: 31 Year
  Sex: Male

DRUGS (3)
  1. ABILIFY [Suspect]
     Active Substance: ARIPIPRAZOLE
     Indication: PARANOIA
  2. IBUPROFEN. [Suspect]
     Active Substance: IBUPROFEN
     Indication: PRODUCT USED FOR UNKNOWN INDICATION
     Dosage: UNK, TID (THREE TIMES DAILY)
     Route: 065
  3. ABILIFY [Suspect]
     Active Substance: ARIPIPRAZOLE
     Indication: SCHIZOPHRENIA
     Dosage: 5 MG, TID (THREE TIMES DAILY)
     Route: 065
     Dates: start: 201605, end: 201610

REACTIONS (12)
  - Loss of personal independence in daily activities [Recovering/Resolving]
  - Overweight [Not Recovered/Not Resolved]
  - Crime [Unknown]
  - Abdominal discomfort [Unknown]
  - Inability to afford medication [Unknown]
  - Disability [Unknown]
  - Libido increased [Recovering/Resolving]
  - Intellectual disability [Unknown]
  - Off label use [Unknown]
  - Drug dependence [Unknown]
  - Adverse event [Unknown]
  - Weight increased [Unknown]

NARRATIVE: CASE EVENT DATE: 201605
